FAERS Safety Report 8259175-9 (Version None)
Quarter: 2012Q2

REPORT INFORMATION
  Report Type: 
  Country: None (occurrence: None)
  Receive Date: 20120403
  Receipt Date: 20120403
  Transmission Date: 20120825
  Serious: Yes (Disabling)
  Sender: FDA-Public Use
  Company Number: None

PATIENT
  Sex: Male
  Weight: 68.0396 kg

DRUGS (1)
  1. OMEPRAZOLE [Suspect]
     Indication: BARRETT'S OESOPHAGUS
     Dosage: 40 DAILY
     Dates: start: 20111201, end: 20120101

REACTIONS (4)
  - TINNITUS [None]
  - SUDDEN HEARING LOSS [None]
  - INSOMNIA [None]
  - PAIN [None]
